FAERS Safety Report 13717113 (Version 1)
Quarter: 2017Q3

REPORT INFORMATION
  Report Type: Spontaneous
  Country: US (occurrence: US)
  Receive Date: 20170704
  Receipt Date: 20170704
  Transmission Date: 20171127
  Serious: Yes (Life-Threatening, Disabling, Other)
  Sender: FDA-Public Use
  Company Number: None

PATIENT
  Age: 52 Year
  Sex: Female
  Weight: 112.5 kg

DRUGS (9)
  1. ALPRAZOLAM. [Suspect]
     Active Substance: ALPRAZOLAM
     Indication: DYSPNOEA
     Dates: start: 20100601, end: 20150407
  2. DEXILANT [Concomitant]
     Active Substance: DEXLANSOPRAZOLE
  3. COENZYME Q10 [Concomitant]
     Active Substance: UBIDECARENONE
  4. CARDIZEM ER [Concomitant]
     Active Substance: DILTIAZEM HYDROCHLORIDE
  5. BABY ASPIRIN [Concomitant]
     Active Substance: ASPIRIN
  6. ALLEGRA [Concomitant]
     Active Substance: FEXOFENADINE HYDROCHLORIDE
  7. COZAAR [Concomitant]
     Active Substance: LOSARTAN POTASSIUM
  8. PEPCID [Concomitant]
     Active Substance: FAMOTIDINE
  9. FISH OIL [Concomitant]
     Active Substance: FISH OIL

REACTIONS (8)
  - Depersonalisation/derealisation disorder [None]
  - Hypertension [None]
  - Drug withdrawal syndrome [None]
  - Syncope [None]
  - Supraventricular tachycardia [None]
  - Mental status changes [None]
  - Oesophageal motility disorder [None]
  - Salivary hypersecretion [None]

NARRATIVE: CASE EVENT DATE: 20131123
